FAERS Safety Report 5971730-5 (Version None)
Quarter: 2008Q4

REPORT INFORMATION
  Report Type: 
  Country: None (occurrence: None)
  Receive Date: 20081126
  Receipt Date: 20081126
  Transmission Date: 20090506
  Serious: Yes (Hospitalization)
  Sender: FDA-Public Use
  Company Number: None

PATIENT
  Sex: Male
  Weight: 76.1 kg

DRUGS (10)
  1. TEMOZOLOMIDE [Suspect]
     Dosage: 4095 MG
  2. ASPIRIN [Concomitant]
  3. ZOCOR [Concomitant]
  4. FLONASE [Concomitant]
  5. METROGEL [Concomitant]
  6. CIALIS [Concomitant]
  7. AMBIEN [Concomitant]
  8. M.V.I. [Concomitant]
  9. FISH OIL [Concomitant]
  10. CELEXA [Concomitant]

REACTIONS (14)
  - ATELECTASIS [None]
  - BRONCHIOLITIS [None]
  - DECREASED APPETITE [None]
  - DELIRIUM [None]
  - DEPRESSED MOOD [None]
  - ENCEPHALITIS HERPES [None]
  - HERPES ZOSTER [None]
  - HYPOPHAGIA [None]
  - MENTAL STATUS CHANGES [None]
  - NAUSEA [None]
  - PHARYNGITIS [None]
  - PNEUMONIA ASPIRATION [None]
  - RESPIRATORY FAILURE [None]
  - VOMITING [None]
